FAERS Safety Report 10626015 (Version 5)
Quarter: 2015Q1

REPORT INFORMATION
  Report Type: Spontaneous
  Country: FR (occurrence: FR)
  Receive Date: 20141204
  Receipt Date: 20150108
  Transmission Date: 20150720
  Serious: Yes (Death, Life-Threatening, Hospitalization, Other)
  Sender: FDA-Public Use
  Company Number: FR-PFIZER INC-2014330327

PATIENT

DRUGS (7)
  1. ZOLOFT [Suspect]
     Active Substance: SERTRALINE HYDROCHLORIDE
     Dosage: 25 MG, 3X/DAY
     Route: 064
     Dates: start: 20140908
  2. LEXOMIL [Suspect]
     Active Substance: BROMAZEPAM
     Dosage: 0.25 DF, 2X/DAY AS NEEDED
     Route: 064
     Dates: start: 20140908
  3. LAMICTAL [Concomitant]
     Active Substance: LAMOTRIGINE
     Dosage: PROGRESSIVE WITHDRAWAL
     Route: 064
     Dates: start: 201408, end: 201408
  4. XEROQUEL LP [Concomitant]
     Active Substance: QUETIAPINE FUMARATE
     Dosage: 50
     Route: 064
  5. ZYPREXA [Suspect]
     Active Substance: OLANZAPINE
     Indication: BIPOLAR DISORDER
     Dosage: 5 MG, UNK
     Route: 064
     Dates: start: 20140211, end: 20140908
  6. AVLOCARDYL [Concomitant]
     Active Substance: PROPRANOLOL HYDROCHLORIDE
     Dosage: 40
     Route: 064
  7. LAMICTAL [Concomitant]
     Active Substance: LAMOTRIGINE
     Dosage: 100 MG, UNK
     Route: 064
     Dates: start: 20140211, end: 2014

REACTIONS (3)
  - Maternal exposure during pregnancy [Fatal]
  - Foetal death [Fatal]
  - Bradycardia foetal [Unknown]

NARRATIVE: CASE EVENT DATE: 20140915
